FAERS Safety Report 9407137 (Version 2)
Quarter: 2013Q3

REPORT INFORMATION
  Report Type: Spontaneous
  Country: TH (occurrence: TH)
  Receive Date: 20130718
  Receipt Date: 20130725
  Transmission Date: 20140515
  Serious: Yes (Hospitalization)
  Sender: FDA-Public Use
  Company Number: PHHY2013TH074166

PATIENT
  Age: 50 Year
  Sex: Female

DRUGS (3)
  1. PREDNISOLONE [Suspect]
     Dosage: 1 MG/KG/DAY
     Route: 048
  2. MYFORTIC [Suspect]
     Dosage: 540 MG, Q12H
     Route: 048
  3. PROGRAFT [Suspect]
     Dosage: 0.2 MG/KG/DAY
     Route: 048

REACTIONS (4)
  - Anaemia [Recovered/Resolved]
  - Duodenal ulcer haemorrhage [Recovered/Resolved]
  - Melaena [Recovered/Resolved]
  - Duodenal ulcer [Recovered/Resolved]
